FAERS Safety Report 9420107 (Version 2)
Quarter: 2013Q3

REPORT INFORMATION
  Report Type: Spontaneous
  Country: BR (occurrence: BR)
  Receive Date: 20130725
  Receipt Date: 20130829
  Transmission Date: 20140515
  Serious: Yes (Hospitalization, Other)
  Sender: FDA-Public Use
  Company Number: BR-GLAXOSMITHKLINE-B0910105A

PATIENT
  Age: 65 Year
  Sex: Female
  Weight: 55 kg

DRUGS (7)
  1. RYTHMOL [Suspect]
     Indication: ARRHYTHMIA
     Dosage: 300MG TWICE PER DAY
     Route: 048
     Dates: end: 20130816
  2. RYTHMOL [Suspect]
     Indication: ARRHYTHMIA
     Dosage: 450MG PER DAY
     Route: 048
     Dates: start: 20130816
  3. RYTHMOL [Suspect]
     Indication: ARRHYTHMIA
     Dosage: 300MG TWICE PER DAY
     Route: 048
     Dates: start: 20130715
  4. ATENOLOL [Concomitant]
     Indication: VASODILATATION
     Dosage: 25MG PER DAY
     Route: 048
     Dates: start: 20130530
  5. XARELTO [Concomitant]
     Indication: ANTICOAGULANT THERAPY
     Dosage: 20MG PER DAY
     Route: 048
     Dates: start: 20130530
  6. LOSARTAN [Concomitant]
     Indication: HYPERTENSION
     Dosage: 50MG AT NIGHT
     Route: 048
     Dates: start: 20130530
  7. DRAMIN [Concomitant]
     Route: 042

REACTIONS (11)
  - Arrhythmia [Recovered/Resolved]
  - Hypertension [Recovered/Resolved]
  - Chest pain [Not Recovered/Not Resolved]
  - Unevaluable event [Not Recovered/Not Resolved]
  - Malaise [Unknown]
  - Tinnitus [Not Recovered/Not Resolved]
  - Headache [Not Recovered/Not Resolved]
  - Myalgia [Unknown]
  - Thyroid disorder [Unknown]
  - Feeling of despair [Unknown]
  - Medication error [Unknown]
